FAERS Safety Report 13626053 (Version 2)
Quarter: 2017Q3

REPORT INFORMATION
  Report Type: Spontaneous
  Country: US (occurrence: US)
  Receive Date: 20170608
  Receipt Date: 20170706
  Transmission Date: 20171127
  Serious: Yes (Other)
  Sender: FDA-Public Use
  Company Number: US-TEVA-775940ACC

PATIENT
  Age: 41 Year
  Sex: Female
  Weight: 52.21 kg

DRUGS (6)
  1. PENICILLIN [Concomitant]
     Active Substance: PENICILLIN
  2. CIMETIDINE [Concomitant]
     Active Substance: CIMETIDINE
  3. MULTIVITAMINS [Concomitant]
     Active Substance: VITAMINS
  4. PARAGARD T 380A [Suspect]
     Active Substance: COPPER
     Indication: CONTRACEPTION
     Dates: start: 20170503, end: 20170531
  5. VITAMIN D [Concomitant]
     Active Substance: CHOLECALCIFEROL
     Indication: VITAMIN D DEFICIENCY
  6. VALIUM [Concomitant]
     Active Substance: DIAZEPAM
     Dates: start: 20170503, end: 20170503

REACTIONS (1)
  - Device dislocation [Recovered/Resolved]

NARRATIVE: CASE EVENT DATE: 20170509
